FAERS Safety Report 8144635-1 (Version None)
Quarter: 2012Q1

REPORT INFORMATION
  Report Type: 
  Country: None (occurrence: None)
  Receive Date: 20120217
  Receipt Date: 20110520
  Transmission Date: 20120608
  Serious: Yes (Other)
  Sender: FDA-Public Use
  Company Number: US-ROCHE-1040495

PATIENT

DRUGS (3)
  1. IRINOTECAN HYDROCHLORIDE [Suspect]
     Indication: GLIOBLASTOMA
  2. AVASTIN [Suspect]
     Indication: GLIOBLASTOMA
     Route: 065
  3. TEMOZOLOMIDE [Suspect]
     Indication: GLIOBLASTOMA
     Route: 065

REACTIONS (3)
  - HAEMATOTOXICITY [None]
  - EMBOLISM VENOUS [None]
  - HAEMORRHAGE [None]
